FAERS Safety Report 10284401 (Version 1)
Quarter: 2014Q3

REPORT INFORMATION
  Report Type: Spontaneous
  Country: US (occurrence: None)
  Receive Date: 20140703
  Receipt Date: 20140703
  Transmission Date: 20150326
  Serious: Yes (Life-Threatening, Hospitalization, Other)
  Sender: FDA-Public Use
  Company Number: None

PATIENT
  Age: 26 Year
  Sex: Female
  Weight: 113.4 kg

DRUGS (2)
  1. SERTRALINE HCL [Suspect]
     Active Substance: SERTRALINE HYDROCHLORIDE
     Indication: ANXIETY
     Dosage: 1 TO 2, ONCE DAILY, TAKEN BY MOUTH
     Route: 048
     Dates: start: 20140616, end: 20140630
  2. SERTRALINE HCL [Suspect]
     Active Substance: SERTRALINE HYDROCHLORIDE
     Indication: STRESS
     Dosage: 1 TO 2, ONCE DAILY, TAKEN BY MOUTH
     Route: 048
     Dates: start: 20140616, end: 20140630

REACTIONS (1)
  - Paranoia [None]

NARRATIVE: CASE EVENT DATE: 20140630
